FAERS Safety Report 14185066 (Version 3)
Quarter: 2017Q4

REPORT INFORMATION
  Report Type: Report from Study
  Country: None (occurrence: US)
  Receive Date: 20171114
  Receipt Date: 20171123
  Transmission Date: 20180321
  Serious: Yes (Other)
  Sender: FDA-Public Use
  Company Number: US-ABBVIE-17K-163-2156299-00

PATIENT
  Age: 54 Year
  Sex: Female
  Weight: 41.77 kg

DRUGS (1)
  1. HUMIRA [Suspect]
     Active Substance: ADALIMUMAB
     Indication: CROHN^S DISEASE
     Route: 058
     Dates: start: 201704

REACTIONS (5)
  - Pruritus [Not Recovered/Not Resolved]
  - Weight decreased [Recovered/Resolved]
  - Haemorrhoids [Not Recovered/Not Resolved]
  - Gastric polyps [Recovered/Resolved]
  - Helicobacter gastritis [Unknown]

NARRATIVE: CASE EVENT DATE: 201707
